APPROVED DRUG PRODUCT: LIDOCAINE HYDROCHLORIDE AND EPINEPHRINE
Active Ingredient: EPINEPHRINE; LIDOCAINE HYDROCHLORIDE
Strength: 0.01MG/ML;2%
Dosage Form/Route: SOLUTION;IONTOPHORESIS, TOPICAL
Application: N021486 | Product #001
Applicant: EMPI INC
Approved: Oct 26, 2004 | RLD: No | RS: No | Type: DISCN